FAERS Safety Report 5933051-6 (Version None)
Quarter: 2008Q4

REPORT INFORMATION
  Report Type: 
  Country: None (occurrence: None)
  Receive Date: 20081028
  Receipt Date: 20081015
  Transmission Date: 20090506
  Serious: Yes (Death, Hospitalization, Other)
  Sender: FDA-Public Use
  Company Number: US-ELI_LILLY_AND_COMPANY-US200809005944

PATIENT
  Sex: Female
  Weight: 71.202 kg

DRUGS (12)
  1. FORTEO [Suspect]
     Indication: OSTEOPOROSIS
     Dosage: 20 UG, DAILY (1/D)
     Dates: start: 20080501
  2. DUONEB [Concomitant]
     Dosage: UNK, OTHER
  3. ACETYLCYSTEINE [Concomitant]
     Dosage: 3 GTT, OTHER
  4. ALBUTEROL [Concomitant]
     Dosage: 2 D/F, AS NEEDED
  5. OXYGEN [Concomitant]
     Indication: PULMONARY FUNCTION TEST DECREASED
     Route: 055
  6. PREDNISONE TAB [Concomitant]
     Indication: PULMONARY FUNCTION TEST DECREASED
  7. PREDNISONE TAB [Concomitant]
     Dosage: 5 MG, DAILY (1/D)
  8. MECLIZINE [Concomitant]
     Indication: DIZZINESS
     Dosage: 25 MG, 4/D
  9. TESSALON [Concomitant]
     Indication: COUGH
     Dosage: 200 MG, AS NEEDED
  10. ATROVENT [Concomitant]
     Dosage: 0.5 MG, AS NEEDED
  11. VICODIN [Concomitant]
     Dosage: UNK, AS NEEDED
  12. NEXIUM [Concomitant]
     Dosage: 40 MG, EACH MORNING

REACTIONS (8)
  - CHRONIC OBSTRUCTIVE PULMONARY DISEASE [None]
  - CONFUSIONAL STATE [None]
  - FALL [None]
  - PNEUMONIA [None]
  - RESPIRATORY FAILURE [None]
  - RIB FRACTURE [None]
  - SOMNOLENCE [None]
  - STERNAL FRACTURE [None]
